FAERS Safety Report 15309282 (Version 1)
Quarter: 2018Q3

REPORT INFORMATION
  Report Type: Spontaneous
  Country: FR (occurrence: FR)
  Receive Date: 20180823
  Receipt Date: 20180823
  Transmission Date: 20181010
  Serious: Yes (Hospitalization)
  Sender: FDA-Public Use
  Company Number: FR-TEVA-2018-FR-946035

PATIENT
  Age: 88 Year
  Sex: Male
  Weight: 72 kg

DRUGS (8)
  1. PLAVIX [Concomitant]
     Active Substance: CLOPIDOGREL BISULFATE
     Route: 065
  2. CRESTOR [Concomitant]
     Active Substance: ROSUVASTATIN CALCIUM
     Route: 065
  3. AMLODIPINE [Concomitant]
     Active Substance: AMLODIPINE BESYLATE
     Route: 065
  4. IKOREL 20 MG, COMPRIM? [Concomitant]
     Route: 065
  5. DOLIPRANE [Concomitant]
     Active Substance: ACETAMINOPHEN
     Route: 065
  6. ALPRAZOLAM. [Suspect]
     Active Substance: ALPRAZOLAM
     Indication: ANXIETY
     Dosage: .25 MILLIGRAM DAILY;
     Route: 048
  7. SOTALOL (CHLORHYDRATE DE) [Concomitant]
     Active Substance: SOTALOL
     Route: 065
  8. EXELON PATCH [Suspect]
     Active Substance: RIVASTIGMINE
     Indication: DEMENTIA ALZHEIMER^S TYPE
     Dosage: 1 DOSAGE FORMS DAILY;
     Route: 062
     Dates: end: 20180701

REACTIONS (3)
  - Constipation [Recovering/Resolving]
  - Confusional state [Recovering/Resolving]
  - Gait disturbance [Recovering/Resolving]

NARRATIVE: CASE EVENT DATE: 20180629
